FAERS Safety Report 6475010-3 (Version None)
Quarter: 2009Q4

REPORT INFORMATION
  Report Type: 
  Country: None (occurrence: None)
  Receive Date: 20091204
  Receipt Date: 20090512
  Transmission Date: 20100525
  Serious: Yes (Other)
  Sender: FDA-Public Use
  Company Number: FR-ELI_LILLY_AND_COMPANY-FR200903001576

PATIENT
  Age: 54 Year
  Sex: Male
  Weight: 154 kg

DRUGS (8)
  1. BYETTA [Suspect]
     Indication: TYPE 1 DIABETES MELLITUS
     Dosage: 5 UG, 2/D
     Route: 058
     Dates: start: 20081119
  2. BYETTA [Suspect]
     Dosage: 10 UG, 2/D
     Route: 058
     Dates: end: 20081226
  3. INSULIN [Concomitant]
     Indication: TYPE 1 DIABETES MELLITUS
     Dosage: UNK, UNKNOWN
     Route: 065
  4. ANTIHYPERTENSIVES [Concomitant]
     Indication: HYPERTENSION
     Dosage: UNK, UNKNOWN
     Route: 065
  5. GLUCOPHAGE [Concomitant]
     Indication: DIABETES MELLITUS
     Dosage: 1000 MG, 2/D
  6. TAHOR [Concomitant]
     Dosage: 20 MG, DAILY (1/D)
  7. KARDEGIC [Concomitant]
     Dosage: 1 D/F, DAILY (1/D)
  8. LOXEN [Concomitant]
     Dosage: 1 D/F, DAILY (1/D)

REACTIONS (2)
  - EPISTAXIS [None]
  - HYPERTENSION [None]
